FAERS Safety Report 8856245 (Version 1)
Quarter: 2012Q4

REPORT INFORMATION
  Report Type: Spontaneous
  Country: US (occurrence: None)
  Receive Date: 20121023
  Receipt Date: 20121023
  Transmission Date: 20130627
  Serious: No
  Sender: FDA-Public Use
  Company Number: None

PATIENT
  Age: 69 Year
  Weight: 78.47 kg

DRUGS (1)
  1. NORCO [Suspect]
     Indication: LEG PAIN
     Dosage: 10/325 1-@ 4 hrs
     Dates: start: 201209

REACTIONS (4)
  - Blister [None]
  - Drug ineffective [None]
  - Product quality issue [None]
  - Product formulation issue [None]
